FAERS Safety Report 7045017-6 (Version None)
Quarter: 2010Q3

REPORT INFORMATION
  Report Type: 
  Country: None (occurrence: None)
  Receive Date: 20100929
  Receipt Date: 20100616
  Transmission Date: 20110219
  Serious: No
  Sender: FDA-Public Use
  Company Number: US-WYE-H16077510

PATIENT
  Age: 33 Year
  Sex: Female
  Weight: 54.48 kg

DRUGS (2)
  1. PRISTIQ [Suspect]
     Indication: ANXIETY
     Dosage: 50 MG 1X PER 1 DAY ,ORAL
     Route: 048
     Dates: start: 20100614
  2. ALPRAZOLAM [Suspect]
     Indication: PANIC DISORDER
     Dosage: 1 MG 1X PER 1 DAY

REACTIONS (1)
  - HEADACHE [None]
